FAERS Safety Report 5572302-7 (Version None)
Quarter: 2007Q4

REPORT INFORMATION
  Report Type: 
  Country: None (occurrence: None)
  Receive Date: 20071221
  Receipt Date: 20071213
  Transmission Date: 20080405
  Serious: Yes (Other)
  Sender: FDA-Public Use
  Company Number: US-PFIZER INC-2007105016

PATIENT
  Sex: Female
  Weight: 97.5 kg

DRUGS (4)
  1. LYRICA [Suspect]
     Indication: FIBROMYALGIA
     Dates: start: 20071101, end: 20071203
  2. IMURAN [Suspect]
     Indication: FIBROMYALGIA
  3. ALL OTHER NON-THERAPEUTIC PRODUCTS [Suspect]
  4. ALL OTHER THERAPEUTIC PRODUCTS [Concomitant]

REACTIONS (8)
  - BODY TEMPERATURE DECREASED [None]
  - CHILLS [None]
  - DISTURBANCE IN ATTENTION [None]
  - FALL [None]
  - HYPOAESTHESIA [None]
  - MUSCULAR WEAKNESS [None]
  - OEDEMA PERIPHERAL [None]
  - TREMOR [None]
